FAERS Safety Report 4745154-2 (Version None)
Quarter: 2005Q3

REPORT INFORMATION
  Report Type: 
  Country: None (occurrence: None)
  Receive Date: 20050812
  Receipt Date: 20050727
  Transmission Date: 20060218
  Serious: Yes (Death)
  Sender: FDA-Public Use
  Company Number: S05-CAN-02763-01

PATIENT
  Age: 76 Year
  Sex: Male

DRUGS (9)
  1. CELEXA [Suspect]
     Indication: DEPRESSION
     Dosage: 10 MG QD PO
     Route: 048
     Dates: start: 20050503, end: 20050506
  2. CELEXA [Suspect]
     Indication: DEPRESSION
     Dosage: 20 MG QD PO
     Route: 048
     Dates: start: 20050506, end: 20050601
  3. CELEXA [Suspect]
     Indication: DEPRESSION
     Dosage: 20 MG QD PO
     Route: 048
     Dates: start: 20050601, end: 20050711
  4. VALPROIC ACID [Concomitant]
  5. LIPITOR [Concomitant]
  6. PLAVIX [Concomitant]
  7. ASPIRIN [Concomitant]
  8. ATENOLOL [Concomitant]
  9. NEXIUM [Concomitant]

REACTIONS (5)
  - AGITATION [None]
  - COLECTOMY [None]
  - DRUG WITHDRAWAL SYNDROME [None]
  - MUSCLE RIGIDITY [None]
  - POST PROCEDURAL COMPLICATION [None]
